FAERS Safety Report 9355191 (Version 1)
Quarter: 2013Q2

REPORT INFORMATION
  Report Type: Report from Study
  Country: US (occurrence: US)
  Receive Date: 20130619
  Receipt Date: 20130619
  Transmission Date: 20140414
  Serious: Yes (Death)
  Sender: FDA-Public Use
  Company Number: PHEH2013US013083

PATIENT
  Sex: Male

DRUGS (7)
  1. AFINITOR [Suspect]
     Dosage: 10 MG, DAILY
     Route: 048
  2. CYMBALTA [Concomitant]
     Dosage: 20 MG, UNK
  3. ONGLYZA [Concomitant]
     Dosage: 2.5 MG, UNK
  4. NEURONTIN [Concomitant]
     Dosage: 100 MG, UNK
  5. SYNTHROID [Concomitant]
     Dosage: 100 UG, UNK
  6. CRESTOR [Concomitant]
     Dosage: 10 MG, UNK
  7. PERCOCET [Concomitant]

REACTIONS (1)
  - Death [Fatal]
